FAERS Safety Report 16794069 (Version 7)
Quarter: 2019Q4

REPORT INFORMATION
  Report Type: Report from Study
  Country: US (occurrence: US)
  Receive Date: 20190911
  Receipt Date: 20191212
  Transmission Date: 20200122
  Serious: Yes (Other)
  Sender: FDA-Public Use
  Company Number: US-TESARO-2019-TSO03061-US

PATIENT
  Sex: Female

DRUGS (4)
  1. NIRAPARIB [Suspect]
     Active Substance: NIRAPARIB
     Indication: OVARIAN CANCER
     Dosage: 200 MG, QD
     Route: 065
     Dates: start: 20190831, end: 20190923
  2. NIRAPARIB [Suspect]
     Active Substance: NIRAPARIB
     Dosage: 100 MG, PM WITHOUT FOOD
     Route: 065
     Dates: start: 20191008
  3. TUMERIC [Concomitant]
     Active Substance: HERBALS\TURMERIC
     Indication: PRODUCT USED FOR UNKNOWN INDICATION
  4. NIRAPARIB [Suspect]
     Active Substance: NIRAPARIB
     Dosage: 100 MG, PM WITHOUT FOOD
     Route: 065
     Dates: start: 20191008

REACTIONS (14)
  - Fatigue [Not Recovered/Not Resolved]
  - Rheumatoid arthritis [Unknown]
  - Nausea [Recovered/Resolved]
  - Abdominal pain upper [Recovered/Resolved]
  - Anaemia [Not Recovered/Not Resolved]
  - Pain in jaw [Recovering/Resolving]
  - Arthralgia [Unknown]
  - Platelet count decreased [Recovered/Resolved]
  - Emotional distress [Unknown]
  - Tearfulness [Unknown]
  - Joint swelling [Unknown]
  - Myalgia [Unknown]
  - Abdominal discomfort [Unknown]
  - Constipation [Unknown]
